FAERS Safety Report 24298331 (Version 1)
Quarter: 2024Q3

REPORT INFORMATION
  Report Type: Spontaneous
  Country: US (occurrence: US)
  Receive Date: 20240909
  Receipt Date: 20240909
  Transmission Date: 20241016
  Serious: No
  Sender: SUNOVION
  Company Number: US-SUMITOMO PHARMA SWITZERLAND GMBH-2024SPA001408

PATIENT

DRUGS (2)
  1. GEMTESA [Suspect]
     Active Substance: VIBEGRON
     Indication: Incontinence
     Dosage: 75 MG (ONE PILL, BEFORE GOING TO BED)
     Route: 048
  2. BOTOX [Concomitant]
     Active Substance: ONABOTULINUMTOXINA
     Indication: Incontinence

REACTIONS (2)
  - Urinary incontinence [Not Recovered/Not Resolved]
  - Therapy cessation [Unknown]

NARRATIVE: CASE EVENT DATE: 20240812
